FAERS Safety Report 6238878-1 (Version None)
Quarter: 2009Q2

REPORT INFORMATION
  Report Type: 
  Country: None (occurrence: None)
  Receive Date: 20090617
  Receipt Date: 20090617
  Transmission Date: 20091009
  Serious: Yes (Other)
  Sender: FDA-Public Use
  Company Number: None

PATIENT
  Age: 39 Year
  Sex: Female
  Weight: 61.2356 kg

DRUGS (1)
  1. LATISSE [Suspect]
     Indication: GROWTH OF EYELASHES
     Dosage: 1 DROP EVERY NIGHT OPHTHALMIC 3 1/2 WEEKS
     Route: 047
     Dates: start: 20090520, end: 20090615

REACTIONS (4)
  - EMOTIONAL DISTRESS [None]
  - EYELID DISORDER [None]
  - PREMATURE AGEING [None]
  - SKIN DISCOLOURATION [None]
